FAERS Safety Report 4497905-2 (Version None)
Quarter: 2004Q4

REPORT INFORMATION
  Report Type: 
  Country: None (occurrence: None)
  Receive Date: 20041104
  Receipt Date: 20041025
  Transmission Date: 20050328
  Serious: Yes (Life-Threatening, Hospitalization)
  Sender: FDA-Public Use
  Company Number: 2004240916DE

PATIENT
  Age: 65 Year
  Sex: Male

DRUGS (13)
  1. PANTOPRAZOLE SODIUM [Suspect]
     Indication: PROPHYLAXIS AGAINST GASTROINTESTINAL ULCER
     Dosage: 40 MG, QD
     Dates: start: 20040601
  2. EUTIROX (LEVOTHYROXINE) [Suspect]
     Indication: HYPOTHYROIDISM
     Dosage: 100 MG, QD, ORAL
     Route: 048
     Dates: start: 19990101
  3. FALITHROM (PHENPROCOUMON) [Suspect]
     Indication: ATRIAL FIBRILLATION
     Dosage: 1.5 MG , QD, ORAL
     Route: 048
     Dates: start: 20040601
  4. RAPAMUNE [Suspect]
     Indication: IMMUNOSUPPRESSION
     Dosage: 1.5 MG , QD, ORAL
     Route: 048
     Dates: start: 20040301
  5. MEDRATE 2/4/16/32/100 (METHYLPREDNISOLONE, METHYLPREDNISOLONE) TABLET [Suspect]
     Dosage: 8 MG, QD, ORAL
     Route: 048
     Dates: start: 20040301
  6. BAYOTENSIN [Concomitant]
  7. BELOC-ZOC MITE (METOPROLOL SUCCINATE) [Concomitant]
  8. CELLCEPT [Concomitant]
  9. DIGITOXIN TAB [Concomitant]
  10. RENACOR [Concomitant]
  11. ROCALTROL [Concomitant]
  12. TOREM [Concomitant]
  13. TRAMIL [Concomitant]

REACTIONS (2)
  - EPISTAXIS [None]
  - POST PROCEDURAL COMPLICATION [None]
